FAERS Safety Report 23028982 (Version 2)
Quarter: 2023Q4

REPORT INFORMATION
  Report Type: Report from Study
  Country: US (occurrence: US)
  Receive Date: 20231004
  Receipt Date: 20231027
  Transmission Date: 20240110
  Serious: Yes (Hospitalization, Other)
  Sender: FDA-Public Use
  Company Number: US-SA-2023SA286675

PATIENT
  Age: 63 Year
  Sex: Female
  Weight: 82 kg

DRUGS (100)
  1. OXALIPLATIN [Suspect]
     Active Substance: OXALIPLATIN
     Indication: Colorectal cancer
     Dosage: 167 MG
     Route: 041
     Dates: start: 20221115, end: 20221115
  2. OXALIPLATIN [Suspect]
     Active Substance: OXALIPLATIN
     Dosage: 167 MG
     Route: 041
     Dates: start: 20221213, end: 20221213
  3. OXALIPLATIN [Suspect]
     Active Substance: OXALIPLATIN
     Dosage: 167 MG
     Route: 041
     Dates: start: 20221227, end: 20221227
  4. OXALIPLATIN [Suspect]
     Active Substance: OXALIPLATIN
     Dosage: 167 MG
     Route: 041
     Dates: start: 20230113, end: 20230113
  5. OXALIPLATIN [Suspect]
     Active Substance: OXALIPLATIN
     Dosage: 167 MG
     Route: 041
     Dates: start: 20230125, end: 20230125
  6. OXALIPLATIN [Suspect]
     Active Substance: OXALIPLATIN
     Dosage: 127.4 MG
     Route: 041
     Dates: start: 20230208, end: 20230208
  7. OXALIPLATIN [Suspect]
     Active Substance: OXALIPLATIN
     Dosage: 127.4 MG
     Route: 041
     Dates: start: 20230222, end: 20230222
  8. OXALIPLATIN [Suspect]
     Active Substance: OXALIPLATIN
     Dosage: 122.2 MG
     Route: 041
     Dates: start: 20230308, end: 20230308
  9. OXALIPLATIN [Suspect]
     Active Substance: OXALIPLATIN
     Dosage: 122.2 MG
     Route: 041
     Dates: start: 20230322, end: 20230322
  10. OXALIPLATIN [Suspect]
     Active Substance: OXALIPLATIN
     Dosage: 122.2 MG
     Route: 041
     Dates: start: 20230419, end: 20230419
  11. OXALIPLATIN [Suspect]
     Active Substance: OXALIPLATIN
     Dosage: 122.2 MG
     Route: 041
     Dates: start: 20230503, end: 20230503
  12. OXALIPLATIN [Suspect]
     Active Substance: OXALIPLATIN
     Dosage: 122.2 MG
     Route: 041
     Dates: start: 20230517, end: 20230517
  13. ETRUMADENANT [Suspect]
     Active Substance: ETRUMADENANT
     Indication: Colorectal cancer
     Dosage: 150 MG, QD
     Route: 048
     Dates: start: 20221115, end: 20221212
  14. ETRUMADENANT [Suspect]
     Active Substance: ETRUMADENANT
     Dosage: 150 MG, QD
     Route: 048
     Dates: start: 20221212, end: 20221212
  15. ETRUMADENANT [Suspect]
     Active Substance: ETRUMADENANT
     Dosage: 150 MG, QD
     Route: 048
     Dates: start: 20221213, end: 20230110
  16. ETRUMADENANT [Suspect]
     Active Substance: ETRUMADENANT
     Dosage: 150 MG, QD
     Route: 048
     Dates: start: 20221214, end: 20230110
  17. ETRUMADENANT [Suspect]
     Active Substance: ETRUMADENANT
     Dosage: 150 MG, QD
     Route: 048
     Dates: start: 20221216, end: 20230110
  18. ETRUMADENANT [Suspect]
     Active Substance: ETRUMADENANT
     Dosage: 150 MG, QD
     Route: 048
     Dates: start: 20221226, end: 20230110
  19. ETRUMADENANT [Suspect]
     Active Substance: ETRUMADENANT
     Dosage: 150 MG, QD
     Route: 048
     Dates: start: 20221227, end: 20230110
  20. ETRUMADENANT [Suspect]
     Active Substance: ETRUMADENANT
     Dosage: 150 MG, QD
     Route: 048
     Dates: start: 20221228, end: 20230110
  21. ETRUMADENANT [Suspect]
     Active Substance: ETRUMADENANT
     Dosage: 150 MG, QD
     Route: 048
     Dates: start: 20230110, end: 20230110
  22. ETRUMADENANT [Suspect]
     Active Substance: ETRUMADENANT
     Dosage: 150 MG, QD
     Route: 048
     Dates: start: 20230111, end: 20230206
  23. ETRUMADENANT [Suspect]
     Active Substance: ETRUMADENANT
     Dosage: 150 MG, QD
     Route: 048
     Dates: start: 20230112, end: 20230206
  24. ETRUMADENANT [Suspect]
     Active Substance: ETRUMADENANT
     Dosage: 150 MG, QD
     Route: 048
     Dates: start: 20230113, end: 20230206
  25. ETRUMADENANT [Suspect]
     Active Substance: ETRUMADENANT
     Dosage: 150 MG, QD
     Route: 048
     Dates: start: 20230114, end: 20230206
  26. ETRUMADENANT [Suspect]
     Active Substance: ETRUMADENANT
     Dosage: 150 MG, QD
     Route: 048
     Dates: start: 20230124, end: 20230206
  27. ETRUMADENANT [Suspect]
     Active Substance: ETRUMADENANT
     Dosage: 150 MG, QD
     Route: 048
     Dates: start: 20230125, end: 20230206
  28. ETRUMADENANT [Suspect]
     Active Substance: ETRUMADENANT
     Dosage: 150 MG, QD
     Route: 048
     Dates: start: 20230126, end: 20230206
  29. ETRUMADENANT [Suspect]
     Active Substance: ETRUMADENANT
     Dosage: 150 MG, QD
     Route: 048
     Dates: start: 20230206, end: 20230206
  30. ETRUMADENANT [Suspect]
     Active Substance: ETRUMADENANT
     Dosage: 150 MG, QD
     Route: 048
     Dates: start: 20230208, end: 20230307
  31. ETRUMADENANT [Suspect]
     Active Substance: ETRUMADENANT
     Dosage: 150 MG, QD
     Route: 048
     Dates: start: 20230209, end: 20230307
  32. ETRUMADENANT [Suspect]
     Active Substance: ETRUMADENANT
     Dosage: 150 MG, QD
     Route: 048
     Dates: start: 20230221, end: 20230307
  33. ETRUMADENANT [Suspect]
     Active Substance: ETRUMADENANT
     Dosage: 150 MG, QD
     Route: 048
     Dates: start: 20230222, end: 20230307
  34. ETRUMADENANT [Suspect]
     Active Substance: ETRUMADENANT
     Dosage: 150 MG, QD
     Route: 048
     Dates: start: 20230223, end: 20230307
  35. ETRUMADENANT [Suspect]
     Active Substance: ETRUMADENANT
     Dosage: 150 MG, QD
     Route: 048
     Dates: start: 20230223, end: 20230307
  36. ETRUMADENANT [Suspect]
     Active Substance: ETRUMADENANT
     Dosage: 150 MG, QD
     Route: 048
     Dates: start: 20230308, end: 20230322
  37. ETRUMADENANT [Suspect]
     Active Substance: ETRUMADENANT
     Dosage: 150 MG, QD
     Route: 048
     Dates: start: 20220319, end: 20230322
  38. ETRUMADENANT [Suspect]
     Active Substance: ETRUMADENANT
     Dosage: 150 MG, QD
     Route: 048
     Dates: start: 20230321, end: 20230322
  39. ETRUMADENANT [Suspect]
     Active Substance: ETRUMADENANT
     Dosage: 150 MG, QD
     Route: 048
     Dates: start: 20230322, end: 20230322
  40. ETRUMADENANT [Suspect]
     Active Substance: ETRUMADENANT
     Dosage: 150 MG, QD
     Route: 048
     Dates: start: 20230503, end: 20230503
  41. ETRUMADENANT [Suspect]
     Active Substance: ETRUMADENANT
     Dosage: 150 MG, QD
     Route: 048
     Dates: start: 20230705
  42. ETRUMADENANT [Suspect]
     Active Substance: ETRUMADENANT
     Dosage: 150 MG, QD
     Route: 048
     Dates: start: 20230718, end: 20230718
  43. ETRUMADENANT [Suspect]
     Active Substance: ETRUMADENANT
     Dosage: 150 MG, QD
     Route: 048
     Dates: start: 20230719, end: 20230719
  44. ZIMBERELIMAB [Suspect]
     Active Substance: ZIMBERELIMAB
     Indication: Colorectal cancer
     Dosage: 1 DF, QD
     Route: 041
     Dates: start: 20221115, end: 20221115
  45. ZIMBERELIMAB [Suspect]
     Active Substance: ZIMBERELIMAB
     Dosage: 1 DF, QD
     Route: 041
     Dates: start: 20221213, end: 20221213
  46. ZIMBERELIMAB [Suspect]
     Active Substance: ZIMBERELIMAB
     Dosage: 1 DF, QD
     Route: 041
     Dates: start: 20230111, end: 20230111
  47. ZIMBERELIMAB [Suspect]
     Active Substance: ZIMBERELIMAB
     Dosage: 1 DF, QD
     Route: 041
     Dates: start: 20230208, end: 20230208
  48. ZIMBERELIMAB [Suspect]
     Active Substance: ZIMBERELIMAB
     Dosage: 1 DF, QD
     Route: 041
     Dates: start: 20230308, end: 20230308
  49. ZIMBERELIMAB [Suspect]
     Active Substance: ZIMBERELIMAB
     Dosage: 1 DF, QD
     Route: 041
  50. ZIMBERELIMAB [Suspect]
     Active Substance: ZIMBERELIMAB
     Dosage: 1 DF, QD
     Route: 041
     Dates: start: 20230517, end: 20230517
  51. ZIMBERELIMAB [Suspect]
     Active Substance: ZIMBERELIMAB
     Dosage: 1 DF, QD
     Route: 041
     Dates: start: 20230621, end: 20230621
  52. ZIMBERELIMAB [Suspect]
     Active Substance: ZIMBERELIMAB
     Dosage: 1 DF, QD
     Route: 041
     Dates: start: 20230719, end: 20230719
  53. LEUCOVORIN [Suspect]
     Active Substance: LEUCOVORIN\LEUCOVORIN CALCIUM
     Indication: Colorectal cancer
     Dosage: 400 MG, QD
     Route: 041
     Dates: start: 20221115, end: 20221115
  54. LEUCOVORIN [Suspect]
     Active Substance: LEUCOVORIN\LEUCOVORIN CALCIUM
     Dosage: 400 MG, QD
     Route: 041
     Dates: start: 20221213, end: 20221213
  55. LEUCOVORIN [Suspect]
     Active Substance: LEUCOVORIN\LEUCOVORIN CALCIUM
     Dosage: 400 MG, QD
     Route: 041
     Dates: start: 20221227, end: 20221227
  56. LEUCOVORIN [Suspect]
     Active Substance: LEUCOVORIN\LEUCOVORIN CALCIUM
     Dosage: 400 MG, QD
     Route: 041
     Dates: start: 20230111, end: 20230111
  57. LEUCOVORIN [Suspect]
     Active Substance: LEUCOVORIN\LEUCOVORIN CALCIUM
     Dosage: 400 MG, QD
     Route: 041
     Dates: start: 20230125, end: 20230125
  58. LEUCOVORIN [Suspect]
     Active Substance: LEUCOVORIN\LEUCOVORIN CALCIUM
     Dosage: 400 MG, QD
     Route: 041
     Dates: start: 20230208, end: 20230208
  59. LEUCOVORIN [Suspect]
     Active Substance: LEUCOVORIN\LEUCOVORIN CALCIUM
     Dosage: 400 MG, QD
     Route: 041
     Dates: start: 20230222, end: 20230222
  60. LEUCOVORIN [Suspect]
     Active Substance: LEUCOVORIN\LEUCOVORIN CALCIUM
     Dosage: 400 MG, QD
     Route: 041
     Dates: start: 20230308, end: 20230308
  61. LEUCOVORIN [Suspect]
     Active Substance: LEUCOVORIN\LEUCOVORIN CALCIUM
     Dosage: 400 MG, QD
     Route: 041
     Dates: start: 20230322, end: 20230322
  62. LEUCOVORIN [Suspect]
     Active Substance: LEUCOVORIN\LEUCOVORIN CALCIUM
     Dosage: 400 MG, QD
     Route: 041
     Dates: start: 20230419, end: 20230419
  63. LEUCOVORIN [Suspect]
     Active Substance: LEUCOVORIN\LEUCOVORIN CALCIUM
     Dosage: 400 MG, QD
     Route: 041
     Dates: start: 20230503, end: 20230503
  64. LEUCOVORIN [Suspect]
     Active Substance: LEUCOVORIN\LEUCOVORIN CALCIUM
     Dosage: 400 MG, QD
     Route: 041
     Dates: start: 20230517, end: 20230517
  65. LEUCOVORIN [Suspect]
     Active Substance: LEUCOVORIN\LEUCOVORIN CALCIUM
     Dosage: 400 MG, QD
     Route: 041
     Dates: start: 20230531, end: 20230531
  66. FLUOROURACIL [Suspect]
     Active Substance: FLUOROURACIL
     Indication: Colorectal cancer
     Dosage: 4700 MG, QD
     Route: 041
     Dates: start: 20221115, end: 20221115
  67. FLUOROURACIL [Suspect]
     Active Substance: FLUOROURACIL
     Dosage: 780 MG, QD
     Route: 040
     Dates: start: 20221115, end: 20221115
  68. FLUOROURACIL [Suspect]
     Active Substance: FLUOROURACIL
     Dosage: 4700 MG, QD
     Route: 041
     Dates: start: 20221213, end: 20221213
  69. FLUOROURACIL [Suspect]
     Active Substance: FLUOROURACIL
     Dosage: 780 MG, QD
     Route: 040
     Dates: start: 20221213, end: 20221213
  70. FLUOROURACIL [Suspect]
     Active Substance: FLUOROURACIL
     Dosage: 4700 MG, QD
     Route: 041
     Dates: start: 20221227, end: 20221227
  71. FLUOROURACIL [Suspect]
     Active Substance: FLUOROURACIL
     Dosage: 780 MG, QD
     Route: 040
     Dates: start: 20221227, end: 20221227
  72. FLUOROURACIL [Suspect]
     Active Substance: FLUOROURACIL
     Dosage: 4700 MG, QD
     Route: 041
     Dates: start: 20230111, end: 20230111
  73. FLUOROURACIL [Suspect]
     Active Substance: FLUOROURACIL
     Dosage: 780 MG, QD
     Route: 040
     Dates: start: 20230111, end: 20230111
  74. FLUOROURACIL [Suspect]
     Active Substance: FLUOROURACIL
     Dosage: 4700 MG, QD
     Route: 041
     Dates: start: 20230125, end: 20230125
  75. FLUOROURACIL [Suspect]
     Active Substance: FLUOROURACIL
     Dosage: 780 MG, QD
     Route: 040
     Dates: start: 20230125, end: 20230125
  76. FLUOROURACIL [Suspect]
     Active Substance: FLUOROURACIL
     Dosage: 627.2 MG, QD
     Route: 040
     Dates: start: 20230208, end: 20230208
  77. FLUOROURACIL [Suspect]
     Active Substance: FLUOROURACIL
     Dosage: 3763.2 MG, QD
     Route: 041
     Dates: start: 20230222, end: 20230222
  78. FLUOROURACIL [Suspect]
     Active Substance: FLUOROURACIL
     Dosage: 627.2 MG, QD
     Route: 040
     Dates: start: 20230222, end: 20230222
  79. FLUOROURACIL [Suspect]
     Active Substance: FLUOROURACIL
     Dosage: 3609.6 MG, QD
     Route: 041
     Dates: start: 20230308, end: 20230308
  80. FLUOROURACIL [Suspect]
     Active Substance: FLUOROURACIL
     Dosage: 601.6 MG, QD
     Route: 040
     Dates: start: 20230308, end: 20230308
  81. FLUOROURACIL [Suspect]
     Active Substance: FLUOROURACIL
     Dosage: 3609.6 MG, QD
     Route: 041
     Dates: start: 20230322, end: 20230322
  82. FLUOROURACIL [Suspect]
     Active Substance: FLUOROURACIL
     Dosage: 601.6 MG, QD
     Route: 040
     Dates: start: 20230322, end: 20230322
  83. FLUOROURACIL [Suspect]
     Active Substance: FLUOROURACIL
     Dosage: 3609.6 MG, QD
     Route: 041
     Dates: start: 20230419, end: 20230419
  84. FLUOROURACIL [Suspect]
     Active Substance: FLUOROURACIL
     Dosage: 601.6 MG, QD
     Route: 040
     Dates: start: 20230419, end: 20230419
  85. FLUOROURACIL [Suspect]
     Active Substance: FLUOROURACIL
     Dosage: 601.6 MG, QD
     Route: 041
     Dates: start: 20230503, end: 20230503
  86. FLUOROURACIL [Suspect]
     Active Substance: FLUOROURACIL
     Dosage: 3609.6 MG, QD
     Route: 041
     Dates: start: 20230517, end: 20230517
  87. FLUOROURACIL [Suspect]
     Active Substance: FLUOROURACIL
     Dosage: 601.6 MG, QD
     Route: 040
     Dates: start: 20230517, end: 20230517
  88. FLUOROURACIL [Suspect]
     Active Substance: FLUOROURACIL
     Dosage: 3609.6 MG, QD
     Route: 041
     Dates: start: 20230531, end: 20230531
  89. FLUOROURACIL [Suspect]
     Active Substance: FLUOROURACIL
     Dosage: 601.6 MG, QD
     Route: 040
     Dates: start: 20230531, end: 20230531
  90. FLUOROURACIL [Suspect]
     Active Substance: FLUOROURACIL
     Dosage: 3609.6 MG, QD
     Route: 041
     Dates: start: 20230719, end: 20230719
  91. FLUOROURACIL [Suspect]
     Active Substance: FLUOROURACIL
     Dosage: 601.6 MG, QD
     Route: 040
     Dates: start: 20230719, end: 20230719
  92. BEVACIZUMAB [Suspect]
     Active Substance: BEVACIZUMAB
     Indication: Colorectal cancer
     Dosage: UNK UNK, QD
     Route: 041
     Dates: start: 20221115, end: 20221115
  93. BEVACIZUMAB [Suspect]
     Active Substance: BEVACIZUMAB
     Dosage: UNK UNK, QD
     Route: 041
     Dates: start: 20221213, end: 20221213
  94. BEVACIZUMAB [Suspect]
     Active Substance: BEVACIZUMAB
     Dosage: UNK UNK, QD
     Route: 041
     Dates: start: 20221227, end: 20221227
  95. BEVACIZUMAB [Suspect]
     Active Substance: BEVACIZUMAB
     Dosage: UNK UNK, QD
     Route: 041
     Dates: start: 20230113, end: 20230113
  96. BEVACIZUMAB [Suspect]
     Active Substance: BEVACIZUMAB
     Dosage: UNK UNK, QD
     Route: 041
     Dates: start: 20230125, end: 20230125
  97. BEVACIZUMAB [Suspect]
     Active Substance: BEVACIZUMAB
     Dosage: UNK UNK, QD
     Route: 041
     Dates: start: 20230208, end: 20230208
  98. BEVACIZUMAB [Suspect]
     Active Substance: BEVACIZUMAB
     Dosage: UNK UNK, QD
     Route: 041
     Dates: start: 20230222, end: 20230222
  99. BEVACIZUMAB [Suspect]
     Active Substance: BEVACIZUMAB
     Dosage: UNK UNK, QD
     Route: 041
     Dates: start: 20230308, end: 20230308
  100. BEVACIZUMAB [Suspect]
     Active Substance: BEVACIZUMAB
     Dosage: UNK UNK, QD
     Route: 041
     Dates: start: 20230322, end: 20230322

REACTIONS (4)
  - Disseminated intravascular coagulation [Recovered/Resolved]
  - Leukocytosis [Recovered/Resolved]
  - Acute kidney injury [Recovered/Resolved]
  - Disseminated intravascular coagulation [Recovered/Resolved]

NARRATIVE: CASE EVENT DATE: 20230322
